FAERS Safety Report 5230726-1 (Version None)
Quarter: 2007Q1

REPORT INFORMATION
  Report Type: 
  Country: None (occurrence: None)
  Receive Date: 20070206
  Receipt Date: 20070131
  Transmission Date: 20070707
  Serious: Yes (Other)
  Sender: FDA-Public Use
  Company Number: GB-GLAXOSMITHKLINE-B0359652A

PATIENT
  Sex: Male

DRUGS (4)
  1. SEROXAT [Suspect]
     Route: 065
     Dates: start: 20000101, end: 20010301
  2. CARBAMAZEPINE [Concomitant]
     Route: 065
     Dates: start: 20001001
  3. TRAZODONE HCL [Concomitant]
     Dosage: 150MG UNKNOWN
     Route: 065
     Dates: start: 20001001
  4. CHLORPROMAZINE [Concomitant]
     Route: 065

REACTIONS (9)
  - AGGRESSION [None]
  - AGITATION [None]
  - ANGER [None]
  - ANOREXIA [None]
  - CONDITION AGGRAVATED [None]
  - DEPRESSED MOOD [None]
  - DRUG WITHDRAWAL SYNDROME [None]
  - FRUSTRATION [None]
  - SUICIDAL IDEATION [None]
